FAERS Safety Report 4970136-5 (Version None)
Quarter: 2006Q2

REPORT INFORMATION
  Report Type: 
  Country: None (occurrence: None)
  Receive Date: 20060406
  Receipt Date: 20060329
  Transmission Date: 20061013
  Serious: Yes (Other)
  Sender: FDA-Public Use
  Company Number: 222824

PATIENT
  Age: 12 Year
  Sex: Male

DRUGS (9)
  1. XOLAIR [Suspect]
     Indication: ASTHMA
     Dosage: 375 MG, QOW, SUBCUTANEOUS
     Route: 058
     Dates: start: 20050701
  2. SINGULAIR [Concomitant]
  3. PULMICORT [Concomitant]
  4. FORADIL [Concomitant]
  5. NASONEX [Concomitant]
  6. ZYRTEC [Concomitant]
  7. CHLORPHENIRAMINE MALEATE [Concomitant]
  8. METHSCOPOLAMINE BROMIDE (METHSCOPOLAMINE BROMIDE) [Concomitant]
  9. PHENYLEPHRINE (PHENYLEPHRINE HYDROCHLORIDE) [Concomitant]

REACTIONS (3)
  - ALANINE AMINOTRANSFERASE INCREASED [None]
  - CONDITION AGGRAVATED [None]
  - HEPATIC ENZYME INCREASED [None]
